FAERS Safety Report 10135861 (Version 1)
Quarter: 2014Q2

REPORT INFORMATION
  Report Type: Spontaneous
  Country: US (occurrence: US)
  Receive Date: 20140428
  Receipt Date: 20140428
  Transmission Date: 20141212
  Serious: Yes (Other)
  Sender: FDA-Public Use
  Company Number: PHHY2014US049257

PATIENT
  Age: 55 Year
  Sex: Male

DRUGS (2)
  1. ANASTROZOLE [Suspect]
     Indication: OESTRADIOL INCREASED
     Dosage: 1 MG, QD
  2. ANDROGEL [Suspect]
     Indication: SEXUAL DYSFUNCTION
     Dosage: 50 MG, QD

REACTIONS (3)
  - Osteonecrosis of jaw [Recovered/Resolved]
  - Pain in jaw [Recovered/Resolved]
  - Thrombosis [Unknown]
